FAERS Safety Report 9018227 (Version 1)
Quarter: 2013Q1

REPORT INFORMATION
  Report Type: Spontaneous
  Country: US (occurrence: None)
  Receive Date: 20130111
  Receipt Date: 20130111
  Transmission Date: 20140127
  Serious: Yes (Disabling)
  Sender: FDA-Public Use
  Company Number: None

PATIENT
  Age: 46 Year
  Sex: Female
  Weight: 68.04 kg

DRUGS (1)
  1. ATOVAQUONE [Suspect]
     Route: 048
     Dates: start: 20121013, end: 20121018

REACTIONS (3)
  - Nausea [None]
  - Diarrhoea [None]
  - Abdominal pain [None]
